FAERS Safety Report 6815232-2 (Version None)
Quarter: 2010Q2

REPORT INFORMATION
  Report Type: 
  Country: None (occurrence: None)
  Receive Date: 20100629
  Receipt Date: 20100615
  Transmission Date: 20101027
  Serious: Yes (Hospitalization)
  Sender: FDA-Public Use
  Company Number: A-CH2010-37383

PATIENT
  Age: 55 Year
  Sex: Female

DRUGS (8)
  1. TRACLEER [Suspect]
     Indication: PRINZMETAL ANGINA
     Dosage: 125 MG, OD, ORAL; 125 MG, BID, ORAL; 62.5 MG, BID, ORAL
     Route: 048
  2. ISOSORBIDE MONONITRATE [Concomitant]
  3. ASPIRIN [Concomitant]
  4. GLYCERYL TRINITRATE (GLYCERYL TRINITRATE) [Concomitant]
  5. DILTIAZEM HCL [Concomitant]
  6. NICORANDIL (NICORANDIL) [Concomitant]
  7. DOXAZOSIN MESYLATE [Concomitant]
  8. BISOPROLOL FUMARATE [Concomitant]

REACTIONS (2)
  - INAPPROPRIATE SCHEDULE OF DRUG ADMINISTRATION [None]
  - VENTRICULAR FIBRILLATION [None]
